FAERS Safety Report 21951936 (Version 1)
Quarter: 2023Q1

REPORT INFORMATION
  Report Type: Report from Study
  Country: US (occurrence: US)
  Receive Date: 20230203
  Receipt Date: 20230203
  Transmission Date: 20230417
  Serious: No
  Sender: FDA-Public Use
  Company Number: US-EXELIXIS-CABO-21047379

PATIENT
  Age: 56 Year
  Sex: Male

DRUGS (2)
  1. CABOMETYX [Suspect]
     Active Substance: CABOZANTINIB S-MALATE
     Indication: Product used for unknown indication
     Dosage: 40 MG, QD
     Route: 048
     Dates: start: 202111, end: 20220219
  2. CABOMETYX [Suspect]
     Active Substance: CABOZANTINIB S-MALATE
     Dosage: 40 MG, QD
     Route: 048
     Dates: start: 202202

REACTIONS (10)
  - Parosmia [Unknown]
  - Tongue discomfort [Unknown]
  - Neck pain [Unknown]
  - Ear infection [Unknown]
  - Fall [Unknown]
  - Hypoaesthesia oral [Unknown]
  - Back pain [Unknown]
  - Dysgeusia [Unknown]
  - Dry mouth [Unknown]
  - Pain in extremity [Unknown]

NARRATIVE: CASE EVENT DATE: 20211208
